FAERS Safety Report 4274654-7 (Version None)
Quarter: 2004Q1

REPORT INFORMATION
  Report Type: 
  Country: None (occurrence: None)
  Receive Date: 20040120
  Receipt Date: 19990917
  Transmission Date: 20041129
  Serious: Yes (Hospitalization, Other)
  Sender: FDA-Public Use
  Company Number: 10114692

PATIENT
  Age: 35 Year
  Sex: Male

DRUGS (4)
  1. ZERIT [Suspect]
     Indication: HIV INFECTION
     Route: 048
     Dates: start: 19981201
  2. VIRACEPT [Suspect]
     Indication: HIV INFECTION
     Route: 048
  3. EFAVIRENZ [Suspect]
     Indication: HIV INFECTION
     Dosage: AT BEDTIME
     Route: 048
  4. SYNTHROID [Concomitant]
     Indication: HYPOTHYROIDISM

REACTIONS (6)
  - DYSSTASIA [None]
  - FALL [None]
  - HYPOKALAEMIA [None]
  - LIPODYSTROPHY ACQUIRED [None]
  - PARALYSIS [None]
  - RHABDOMYOLYSIS [None]
